FAERS Safety Report 7092459-9 (Version None)
Quarter: 2010Q4

REPORT INFORMATION
  Report Type: 
  Country: None (occurrence: None)
  Receive Date: 20101108
  Receipt Date: 20101108
  Transmission Date: 20110411
  Serious: Yes (Other)
  Sender: FDA-Public Use
  Company Number: None

PATIENT
  Sex: Female
  Weight: 72.5755 kg

DRUGS (1)
  1. CLINDAMYCIN [Suspect]
     Indication: STAPHYLOCOCCAL INFECTION
     Dosage: 1 CAP 4X DAY BY MOUTH
     Route: 048
     Dates: start: 20101029

REACTIONS (3)
  - ARTHRALGIA [None]
  - JOINT SWELLING [None]
  - PAIN IN EXTREMITY [None]
